FAERS Safety Report 9246904 (Version 1)
Quarter: 2013Q2

REPORT INFORMATION
  Report Type: Spontaneous
  Country: IT (occurrence: IT)
  Receive Date: 20130422
  Receipt Date: 20130422
  Transmission Date: 20140414
  Serious: Yes (Disabling)
  Sender: FDA-Public Use
  Company Number: IT-GLAXOSMITHKLINE-B0885338A

PATIENT
  Age: 58 Year
  Sex: Male

DRUGS (3)
  1. REQUIP [Suspect]
     Indication: PARKINSON^S DISEASE
     Dosage: 8MG PER DAY
     Route: 048
     Dates: start: 20121201, end: 20121230
  2. SINEMET [Concomitant]
     Indication: PARKINSON^S DISEASE
     Dosage: 1030MG PER DAY
     Route: 048
     Dates: start: 20120301, end: 20130408
  3. AZILECT [Concomitant]
     Indication: PARKINSON^S DISEASE
     Dosage: 2MG PER DAY
     Route: 048
     Dates: start: 20100101, end: 20130408

REACTIONS (3)
  - Necrosis [Recovered/Resolved]
  - Myopathy [Recovered/Resolved]
  - Asthenia [Recovered/Resolved]
